FAERS Safety Report 9838647 (Version 2)
Quarter: 2014Q1

REPORT INFORMATION
  Report Type: Spontaneous
  Country: US (occurrence: US)
  Receive Date: 20140123
  Receipt Date: 20140213
  Transmission Date: 20141002
  Serious: No
  Sender: FDA-Public Use
  Company Number: US-PFIZER INC-2014022048

PATIENT
  Age: 70 Year
  Sex: Female
  Weight: 67.12 kg

DRUGS (2)
  1. LYRICA [Suspect]
     Indication: FIBROMYALGIA
     Dosage: 225 MG, 1X/DAY
     Route: 048
     Dates: start: 201311
  2. HYDROCODONE W/ACETAMINOPHEN [Concomitant]
     Dosage: 10/325 MG, UNK

REACTIONS (1)
  - Dysphagia [Unknown]
